FAERS Safety Report 20521253 (Version 2)
Quarter: 2022Q2

REPORT INFORMATION
  Report Type: Spontaneous
  Country: US (occurrence: None)
  Receive Date: 20220226
  Receipt Date: 20220613
  Transmission Date: 20220720
  Serious: Yes (Other)
  Sender: FDA-Public Use
  Company Number: US-ROCHE-3033256

PATIENT
  Sex: Female

DRUGS (1)
  1. OCREVUS [Suspect]
     Active Substance: OCRELIZUMAB
     Indication: Multiple sclerosis
     Dosage: STRENGTH: 300 MG/10 ML
     Route: 042
     Dates: start: 20201204

REACTIONS (4)
  - Multiple sclerosis relapse [Unknown]
  - Pelvic pain [Unknown]
  - Back pain [Unknown]
  - Pain in extremity [Unknown]
